FAERS Safety Report 6127094-X (Version None)
Quarter: 2009Q1

REPORT INFORMATION
  Report Type: 
  Country: None (occurrence: None)
  Receive Date: 20090320
  Receipt Date: 20090317
  Transmission Date: 20090719
  Serious: No
  Sender: FDA-Public Use
  Company Number: US-B.I. PHARMACEUTICALS,INC./RIDGEFIELD-2008-BP-04916BP

PATIENT
  Sex: Female

DRUGS (3)
  1. SPIRIVA [Suspect]
     Indication: CHRONIC OBSTRUCTIVE PULMONARY DISEASE
     Dosage: 18MCG
     Route: 055
     Dates: start: 20070101
  2. CRESTOR [Concomitant]
     Indication: BLOOD CHOLESTEROL INCREASED
  3. UNKNOWN DIURETIC [Concomitant]
     Indication: FLUID RETENTION

REACTIONS (9)
  - COUGH [None]
  - DRY MOUTH [None]
  - DRY THROAT [None]
  - DYSURIA [None]
  - INCREASED UPPER AIRWAY SECRETION [None]
  - MACULAR DEGENERATION [None]
  - ORAL DISORDER [None]
  - THROAT IRRITATION [None]
  - TONGUE COATED [None]
